FAERS Safety Report 20557382 (Version 2)
Quarter: 2022Q2

REPORT INFORMATION
  Report Type: Report from Study
  Country: FR (occurrence: FR)
  Receive Date: 20220307
  Receipt Date: 20220513
  Transmission Date: 20220721
  Serious: Yes (Hospitalization, Other)
  Sender: FDA-Public Use
  Company Number: FR-ALNYLAM PHARMACEUTICALS, INC.-ALN-2020-002516

PATIENT

DRUGS (1)
  1. ONPATTRO [Suspect]
     Active Substance: PATISIRAN SODIUM
     Indication: Product used for unknown indication
     Route: 042

REACTIONS (15)
  - Cerebrovascular accident [Recovered/Resolved with Sequelae]
  - Infusion site extravasation [Unknown]
  - Infusion site extravasation [Unknown]
  - Somnolence [Unknown]
  - Vein disorder [Unknown]
  - Orthostatic hypotension [Unknown]
  - Visual impairment [Unknown]
  - Arrhythmia [Unknown]
  - Infusion site swelling [Unknown]
  - Disease progression [Unknown]
  - Impaired gastric emptying [Unknown]
  - Urinary retention [Unknown]
  - Wrist fracture [Unknown]
  - Fatigue [Unknown]
  - Fall [Unknown]

NARRATIVE: CASE EVENT DATE: 20201030
